FAERS Safety Report 6069847-2 (Version None)
Quarter: 2009Q1

REPORT INFORMATION
  Report Type: 
  Country: None (occurrence: None)
  Receive Date: 20090209
  Receipt Date: 20090202
  Transmission Date: 20090719
  Serious: Yes (Hospitalization)
  Sender: FDA-Public Use
  Company Number: US-BIOGENIDEC-2008BI032968

PATIENT
  Age: 63 Year
  Sex: Female

DRUGS (3)
  1. AVONEX [Suspect]
     Indication: MULTIPLE SCLEROSIS
     Route: 030
     Dates: start: 20030801
  2. AVONEX [Suspect]
     Route: 030
     Dates: start: 19980401, end: 20030801
  3. PLAVIX [Concomitant]
     Indication: DRUG USE FOR UNKNOWN INDICATION

REACTIONS (2)
  - DRUG HYPERSENSITIVITY [None]
  - MYOCARDIAL INFARCTION [None]
